FAERS Safety Report 15883028 (Version 1)
Quarter: 2019Q1

REPORT INFORMATION
  Report Type: Spontaneous
  Country: IT (occurrence: IT)
  Receive Date: 20190129
  Receipt Date: 20190129
  Transmission Date: 20190417
  Serious: Yes (Other)
  Sender: FDA-Public Use
  Company Number: IT-SA-2019SA014930

PATIENT
  Age: 75 Year
  Sex: Male

DRUGS (3)
  1. PEMETREXED DISODIUM [Suspect]
     Active Substance: PEMETREXED DISODIUM
     Indication: SARCOMATOID CARCINOMA
     Dosage: 500 MG/M2
     Dates: start: 201601, end: 2016
  2. CARBOPLATIN. [Suspect]
     Active Substance: CARBOPLATIN
     Indication: SARCOMATOID CARCINOMA
     Dosage: AUC 5
     Dates: start: 201601, end: 2016
  3. DOCETAXEL. [Suspect]
     Active Substance: DOCETAXEL
     Indication: SARCOMATOID CARCINOMA
     Dosage: 35 MG/M2, QW
     Dates: start: 2016, end: 2016

REACTIONS (6)
  - Disease progression [Recovered/Resolved]
  - Sarcomatoid carcinoma [Recovered/Resolved]
  - Drug ineffective [Recovered/Resolved]
  - Nausea [Unknown]
  - Abdominal pain [Unknown]
  - Vomiting [Unknown]

NARRATIVE: CASE EVENT DATE: 2016
